FAERS Safety Report 9440303 (Version 3)
Quarter: 2014Q2

REPORT INFORMATION
  Report Type: Spontaneous
  Country: US (occurrence: US)
  Receive Date: 20130805
  Receipt Date: 20140512
  Transmission Date: 20141212
  Serious: Yes (Life-Threatening, Other)
  Sender: FDA-Public Use
  Company Number: US-ELI_LILLY_AND_COMPANY-US201307011001

PATIENT
  Sex: Male
  Weight: 58.96 kg

DRUGS (17)
  1. CYMBALTA [Suspect]
     Indication: DEPRESSION
     Dosage: 20 MG, UNK
     Dates: start: 20080929
  2. CYMBALTA [Suspect]
     Indication: ANXIETY
     Dosage: 30 MG, UNK
  3. CYMBALTA [Suspect]
     Dosage: 60 MG, UNK
     Dates: start: 20081103
  4. CYMBALTA [Suspect]
     Dosage: 90 MG, QD
     Dates: start: 20090408
  5. WELLBUTRIN XL [Concomitant]
     Indication: DEPRESSION
     Dosage: 300 MG, UNK
  6. WELLBUTRIN XL [Concomitant]
     Dosage: 150 MG, UNK
     Dates: end: 20120623
  7. KLONOPIN [Concomitant]
     Dosage: UNK
     Dates: end: 20081208
  8. ZYPREXA [Concomitant]
     Dosage: 2.5 MG, UNK
     Dates: start: 20081208
  9. ZYPREXA [Concomitant]
     Dosage: 5 MG, BID
     Dates: end: 20090304
  10. NEURONTIN [Concomitant]
     Indication: SLEEP DISORDER
     Dosage: 1 DF, UNK
  11. NEURONTIN [Concomitant]
     Dosage: 300 MG, EACH EVENING
  12. SEROQUEL [Concomitant]
     Dosage: UNK
     Dates: start: 20101116
  13. MULTIVITAMIN [Concomitant]
  14. BIOTIN [Concomitant]
  15. VITAMIN D [Concomitant]
  16. OMEGA 3 [Concomitant]
  17. B COMPLEX [Concomitant]

REACTIONS (20)
  - Suicidal ideation [Unknown]
  - Hepatitis A antibody positive [Unknown]
  - Hepatitis B surface antibody positive [Unknown]
  - Foot fracture [Unknown]
  - Weight increased [Unknown]
  - Ligament sprain [Unknown]
  - Paraesthesia [Unknown]
  - Disorientation [Unknown]
  - Confusional state [Unknown]
  - Insomnia [Unknown]
  - Headache [Unknown]
  - Drug withdrawal syndrome [Unknown]
  - Drug ineffective [Unknown]
  - Swelling face [Unknown]
  - Insomnia [Unknown]
  - Peripheral swelling [Unknown]
  - Flat affect [Unknown]
  - Memory impairment [Unknown]
  - Hypersomnia [Unknown]
  - Pain [Unknown]
